FAERS Safety Report 4522388-3 (Version None)
Quarter: 2004Q4

REPORT INFORMATION
  Report Type: 
  Country: None (occurrence: None)
  Receive Date: 20041209
  Receipt Date: 20041104
  Transmission Date: 20050328
  Serious: Yes (Life-Threatening)
  Sender: FDA-Public Use
  Company Number: PHHO2004CA15731

PATIENT
  Sex: Female

DRUGS (6)
  1. ATIVAN [Concomitant]
  2. HALDOL [Concomitant]
  3. OXYBUTYNIN [Concomitant]
  4. DOMPERIDONE [Concomitant]
  5. GEMFIBROZIL [Concomitant]
  6. CLOZARIL [Suspect]
     Dosage: NOT REPORTED
     Route: 048
     Dates: start: 20011001, end: 20040915

REACTIONS (3)
  - DYSTONIA [None]
  - NEUROLEPTIC MALIGNANT SYNDROME [None]
  - TACHYCARDIA [None]
